FAERS Safety Report 10116882 (Version 1)
Quarter: 2014Q2

REPORT INFORMATION
  Report Type: Spontaneous
  Country: US (occurrence: US)
  Receive Date: 20140425
  Receipt Date: 20140425
  Transmission Date: 20141212
  Serious: No
  Sender: FDA-Public Use
  Company Number: US-GILEAD-2012-0059794

PATIENT
  Age: 44 Year
  Sex: Female

DRUGS (3)
  1. ATRIPLA [Suspect]
     Indication: HIV INFECTION
     Dosage: 1 DF, QD
     Route: 048
  2. ABACAVIR SULFATE W/LAMIVUDINE/ZIDOVUDINE [Concomitant]
     Indication: HIV INFECTION
     Dosage: UNK
  3. ATAZANAVIR SULFATE [Concomitant]
     Indication: HIV INFECTION

REACTIONS (1)
  - Pregnancy [Recovered/Resolved]
